FAERS Safety Report 15403577 (Version 1)
Quarter: 2018Q3

REPORT INFORMATION
  Report Type: Spontaneous
  Country: CH (occurrence: CH)
  Receive Date: 20180919
  Receipt Date: 20180919
  Transmission Date: 20181010
  Serious: Yes (Hospitalization)
  Sender: FDA-Public Use
  Company Number: -ASTRAZENECA-2018SF19034

PATIENT
  Age: 59 Year
  Sex: Female

DRUGS (14)
  1. DAFALGAN [Concomitant]
     Active Substance: ACETAMINOPHEN
     Dosage: AS REQUIRED
  2. ONDANSETRON [Concomitant]
     Active Substance: ONDANSETRON
     Dosage: AS REQUIRED
  3. LAXOBERON [Concomitant]
     Active Substance: SODIUM PICOSULFATE
     Dosage: AS REQUIRED
  4. ASPIRIN CARDIO [Concomitant]
     Active Substance: ASPIRIN
  5. AMLODIPINE [Concomitant]
     Active Substance: AMLODIPINE BESYLATE
  6. LANTUS [Concomitant]
     Active Substance: INSULIN GLARGINE
  7. EUTHYROX [Concomitant]
     Active Substance: LEVOTHYROXINE SODIUM
  8. SEVIKAR HCT [Suspect]
     Active Substance: AMLODIPINE BESYLATE\HYDROCHLOROTHIAZIDE\OLMESARTAN MEDOXOMIL
     Route: 048
     Dates: start: 201807, end: 20180731
  9. SIFROL [Suspect]
     Active Substance: PRAMIPEXOLE
     Dosage: 0.5MG AS REQUIRED
     Route: 048
     Dates: start: 20180724, end: 20180801
  10. NEXIUM [Suspect]
     Active Substance: ESOMEPRAZOLE MAGNESIUM
     Dosage: 40.0MG AS REQUIRED
     Route: 048
     Dates: start: 20180724, end: 20180727
  11. CRESTOR [Concomitant]
     Active Substance: ROSUVASTATIN CALCIUM
  12. NEXIUM [Suspect]
     Active Substance: ESOMEPRAZOLE MAGNESIUM
     Dosage: 40.0MG AS REQUIRED
     Route: 048
     Dates: start: 20180727, end: 20180801
  13. PREGABALIN. [Suspect]
     Active Substance: PREGABALIN
     Route: 048
  14. SIFROL [Suspect]
     Active Substance: PRAMIPEXOLE
     Dosage: 0.5MG AS REQUIRED
     Route: 048
     Dates: end: 20180724

REACTIONS (3)
  - Hyperkalaemia [Recovering/Resolving]
  - Metabolic acidosis [Recovering/Resolving]
  - Acute kidney injury [Recovering/Resolving]

NARRATIVE: CASE EVENT DATE: 20180727
